FAERS Safety Report 7799697-8 (Version None)
Quarter: 2011Q4

REPORT INFORMATION
  Report Type: 
  Country: None (occurrence: None)
  Receive Date: 20111006
  Receipt Date: 20110928
  Transmission Date: 20120403
  Serious: Yes (Other)
  Sender: FDA-Public Use
  Company Number: JP-BAYER-2011-082836

PATIENT
  Age: 69 Year
  Sex: Male

DRUGS (7)
  1. NEXAVAR [Suspect]
     Indication: HEPATIC NEOPLASM MALIGNANT
     Dosage: DAILY DOSE 400 MG
     Route: 048
     Dates: start: 20110420, end: 20110427
  2. DIOVAN HCT [Concomitant]
     Indication: HYPERTENSION
     Dosage: UNK
     Route: 048
  3. DOXAZOSIN MESYLATE [Concomitant]
     Indication: HYPERTENSION
     Dosage: DAILY DOSE 2 MG
     Route: 048
  4. NEXAVAR [Suspect]
     Dosage: DAILY DOSE 400 MG
     Route: 048
     Dates: start: 20110506, end: 20110527
  5. NEXAVAR [Suspect]
     Dosage: DAILY DOSE 600 MG
     Route: 048
     Dates: start: 20110427, end: 20110506
  6. NEXAVAR [Suspect]
     Dosage: 400 MG, QD
     Route: 048
     Dates: start: 20110605
  7. CALBLOCK [Concomitant]
     Indication: HYPERTENSION
     Dosage: DAILY DOSE 16 MG
     Route: 048

REACTIONS (4)
  - DECREASED APPETITE [None]
  - HEPATIC FUNCTION ABNORMAL [None]
  - MALAISE [None]
  - BLOOD AMYLASE INCREASED [None]
